FAERS Safety Report 17778565 (Version 1)
Quarter: 2020Q2

REPORT INFORMATION
  Report Type: Spontaneous
  Country: CH (occurrence: CH)
  Receive Date: 20200513
  Receipt Date: 20200513
  Transmission Date: 20200714
  Serious: Yes (Other)
  Sender: FDA-Public Use
  Company Number: CH-GLAXOSMITHKLINE-CH2020077241

PATIENT
  Age: 47 Year
  Sex: Female

DRUGS (1)
  1. IMIGRAN [Suspect]
     Active Substance: SUMATRIPTAN SUCCINATE
     Indication: MIGRAINE
     Dosage: UNK

REACTIONS (7)
  - Musculoskeletal discomfort [Unknown]
  - Arthralgia [Unknown]
  - Blood calcium decreased [Unknown]
  - Foot fracture [Unknown]
  - Immobilisation prolonged [Unknown]
  - Accident [Unknown]
  - Gait disturbance [Unknown]

NARRATIVE: CASE EVENT DATE: 20190121
